FAERS Safety Report 7790820-8 (Version None)
Quarter: 2011Q3

REPORT INFORMATION
  Report Type: 
  Country: None (occurrence: None)
  Receive Date: 20110930
  Receipt Date: 20110922
  Transmission Date: 20111222
  Serious: Yes (Disabling)
  Sender: FDA-Public Use
  Company Number: US-ASTRAZENECA-2011SE57362

PATIENT
  Age: 59 Year
  Sex: Female

DRUGS (2)
  1. NEXIUM [Suspect]
     Route: 048
  2. ATACAND HCT [Suspect]
     Route: 048

REACTIONS (5)
  - CARPAL TUNNEL SYNDROME [None]
  - FIBROMYALGIA [None]
  - OBESITY [None]
  - IRRITABLE BOWEL SYNDROME [None]
  - HYPERTENSION [None]
